FAERS Safety Report 8509052-0 (Version None)
Quarter: 2012Q3

REPORT INFORMATION
  Report Type: 
  Country: None (occurrence: None)
  Receive Date: 20120713
  Receipt Date: 20120710
  Transmission Date: 20120928
  Serious: Yes (Death)
  Sender: FDA-Public Use
  Company Number: US-ABBOTT-12P-163-0955048-00

PATIENT
  Sex: Female

DRUGS (3)
  1. UNKNOWN MEDICATIONS [Concomitant]
     Indication: PRODUCT USED FOR UNKNOWN INDICATION
  2. HUMIRA [Suspect]
     Indication: ARTHRITIS
     Route: 058
     Dates: start: 20060307
  3. FOSAMAX [Concomitant]
     Indication: PRODUCT USED FOR UNKNOWN INDICATION

REACTIONS (4)
  - DEMENTIA ALZHEIMER'S TYPE [None]
  - DISEASE COMPLICATION [None]
  - HYPOPHAGIA [None]
  - FLUID INTAKE REDUCED [None]
